FAERS Safety Report 7574202-X (Version None)
Quarter: 2011Q2

REPORT INFORMATION
  Report Type: 
  Country: None (occurrence: None)
  Receive Date: 20110627
  Receipt Date: 20110117
  Transmission Date: 20111010
  Serious: Yes (Hospitalization, Other)
  Sender: FDA-Public Use
  Company Number: US-BAYER-201033750NA

PATIENT
  Age: 21 Year
  Sex: Female
  Weight: 68.027 kg

DRUGS (4)
  1. YASMIN [Suspect]
     Indication: CONTRACEPTION
     Dosage: 1 DF, QD
     Route: 048
     Dates: start: 20010501, end: 20020101
  2. WOMEN+#8217;S ONE A DAY [Concomitant]
     Dosage: UNK UNK, QD
     Dates: start: 20020101
  3. DIETHYLPROPION [Concomitant]
     Dosage: 75 MG, UNK
  4. ZOLOFT [Concomitant]
     Indication: DEPRESSION
     Dosage: 100 MG, UNK
     Dates: start: 19991101

REACTIONS (10)
  - DYSPNOEA [None]
  - ABORTION SPONTANEOUS [None]
  - MENTAL DISORDER [None]
  - PULMONARY INFARCTION [None]
  - INCREASED UPPER AIRWAY SECRETION [None]
  - COUGH [None]
  - PAINFUL RESPIRATION [None]
  - DYSPNOEA EXERTIONAL [None]
  - PULMONARY EMBOLISM [None]
  - DEPRESSION [None]
